FAERS Safety Report 18274907 (Version 2)
Quarter: 2020Q3

REPORT INFORMATION
  Report Type: Report from Study
  Country: DE (occurrence: DE)
  Receive Date: 20200917
  Receipt Date: 20200917
  Transmission Date: 20201103
  Serious: Yes (Death, Hospitalization)
  Sender: FDA-Public Use
  Company Number: DE-ROCHE-2675913

PATIENT
  Age: 53 Year
  Sex: Male
  Weight: 62 kg

DRUGS (1)
  1. RITUXIMAB. [Suspect]
     Active Substance: RITUXIMAB
     Indication: ACUTE LYMPHOCYTIC LEUKAEMIA
     Route: 041
     Dates: start: 20180301, end: 20200301

REACTIONS (5)
  - Epilepsy [Fatal]
  - Hypotonia [Fatal]
  - Quadriparesis [Fatal]
  - Respiratory muscle weakness [Fatal]
  - Progressive multifocal leukoencephalopathy [Fatal]

NARRATIVE: CASE EVENT DATE: 20200301
